FAERS Safety Report 5134644-9 (Version None)
Quarter: 2006Q4

REPORT INFORMATION
  Report Type: 
  Country: None (occurrence: None)
  Receive Date: 20061019
  Receipt Date: 20060925
  Transmission Date: 20070319
  Serious: Yes (Hospitalization, Other)
  Sender: FDA-Public Use
  Company Number: 2006123177

PATIENT
  Sex: Male

DRUGS (3)
  1. CELEBREX [Suspect]
     Dosage: ORAL
     Route: 048
     Dates: start: 20040101
  2. BEXTRA [Suspect]
     Dosage: ORAL
     Route: 048
     Dates: start: 20040101
  3. VIOXX [Suspect]
     Dosage: ORAL
     Route: 048
     Dates: start: 20000101

REACTIONS (1)
  - CEREBROVASCULAR ACCIDENT [None]
